FAERS Safety Report 17956961 (Version 1)
Quarter: 2020Q2

REPORT INFORMATION
  Report Type: Spontaneous
  Country: ES (occurrence: ES)
  Receive Date: 20200629
  Receipt Date: 20200629
  Transmission Date: 20200714
  Serious: Yes (Other)
  Sender: FDA-Public Use
  Company Number: ES-TEVA-2020-ES-1791836

PATIENT
  Age: 78 Year
  Sex: Female

DRUGS (2)
  1. CALCIO + VITAMINA D [Concomitant]
     Indication: OSTEOPOROTIC FRACTURE
     Route: 048
     Dates: start: 2015
  2. ALENDRONATO SODIO (2781SO) [Suspect]
     Active Substance: ALENDRONATE SODIUM
     Indication: OSTEOPOROTIC FRACTURE
     Route: 048
     Dates: start: 201509

REACTIONS (1)
  - Dyspnoea [Not Recovered/Not Resolved]

NARRATIVE: CASE EVENT DATE: 201509
